FAERS Safety Report 7345091-3 (Version None)
Quarter: 2011Q1

REPORT INFORMATION
  Report Type: 
  Country: None (occurrence: None)
  Receive Date: 20110310
  Receipt Date: 20110302
  Transmission Date: 20110831
  Serious: Yes (Other)
  Sender: FDA-Public Use
  Company Number: US-SANOFI-AVENTIS-2011SA013733

PATIENT
  Age: 81 Year
  Sex: Male

DRUGS (2)
  1. SOLOSTAR [Suspect]
     Dates: start: 20070101
  2. LANTUS [Suspect]
     Indication: TYPE 2 DIABETES MELLITUS
     Dosage: DOSE:20 UNIT(S)
     Dates: start: 20070101

REACTIONS (1)
  - DEMENTIA [None]
